FAERS Safety Report 17952380 (Version 1)
Quarter: 2020Q2

REPORT INFORMATION
  Report Type: Spontaneous
  Country: US (occurrence: US)
  Receive Date: 20200626
  Receipt Date: 20200626
  Transmission Date: 20200714
  Serious: No
  Sender: FDA-Public Use
  Company Number: US-AMGEN-USASP2016004866

PATIENT
  Age: 18 Year
  Sex: Male

DRUGS (4)
  1. BLINATUMOMAB [Suspect]
     Active Substance: BLINATUMOMAB
     Indication: B PRECURSOR TYPE ACUTE LEUKAEMIA
     Dosage: UNK
     Route: 065
  2. CYTARABIN [Concomitant]
     Active Substance: CYTARABINE
  3. METHOTREXATE. [Concomitant]
     Active Substance: METHOTREXATE
  4. CYCLOPHOSPHAMIDE W/DEXAMETHASONE/DOXORUBICIN/ [Concomitant]

REACTIONS (1)
  - Therapy non-responder [Unknown]
